FAERS Safety Report 4288552-6 (Version None)
Quarter: 2004Q1

REPORT INFORMATION
  Report Type: 
  Country: None (occurrence: None)
  Receive Date: 20040205
  Receipt Date: 20040121
  Transmission Date: 20041129
  Serious: Yes (Hospitalization)
  Sender: FDA-Public Use
  Company Number: 235004

PATIENT
  Age: 61 Year
  Sex: Female
  Weight: 90 kg

DRUGS (1)
  1. ACTIVELLE [Suspect]
     Indication: MENOPAUSAL SYMPTOMS
     Dates: start: 20030301, end: 20030601

REACTIONS (14)
  - AORTIC VALVE INCOMPETENCE [None]
  - ARRHYTHMIA [None]
  - ATRIAL FIBRILLATION [None]
  - CEREBRAL INFARCTION [None]
  - CEREBRAL ISCHAEMIA [None]
  - CEREBROVASCULAR ACCIDENT [None]
  - DILATATION ATRIAL [None]
  - DYSARTHRIA [None]
  - DYSPHONIA [None]
  - HEART RATE INCREASED [None]
  - HEMIPARESIS [None]
  - MITRAL VALVE INCOMPETENCE [None]
  - NEUROLOGICAL EXAMINATION ABNORMAL [None]
  - VIITH NERVE PARALYSIS [None]
